FAERS Safety Report 6299382-8 (Version None)
Quarter: 2009Q3

REPORT INFORMATION
  Report Type: 
  Country: None (occurrence: None)
  Receive Date: 20090806
  Receipt Date: 20090730
  Transmission Date: 20100115
  Serious: Yes (Death, Hospitalization, Other)
  Sender: FDA-Public Use
  Company Number: JP-BAYER-200911104BYL

PATIENT
  Age: 69 Year
  Sex: Male
  Weight: 43 kg

DRUGS (9)
  1. NEXAVAR [Suspect]
     Indication: RENAL CELL CARCINOMA STAGE I
     Dosage: TOTAL DAILY DOSE: 400 MG  UNIT DOSE: 200 MG
     Route: 048
     Dates: start: 20081121, end: 20090226
  2. NEXAVAR [Suspect]
     Dosage: UNIT DOSE: 200 MG
     Route: 048
     Dates: start: 20090227, end: 20090407
  3. NEXAVAR [Suspect]
     Dosage: UNIT DOSE: 200 MG
     Route: 048
     Dates: start: 20090529, end: 20090622
  4. PREDNISOLONE [Suspect]
     Indication: DRUG USE FOR UNKNOWN INDICATION
     Route: 048
     Dates: start: 20090530, end: 20090622
  5. OXYCONTIN [Concomitant]
     Route: 048
     Dates: start: 20090525, end: 20090622
  6. NOVAMIN [Concomitant]
     Route: 048
     Dates: start: 20090525, end: 20090622
  7. BIOFERMIN [Concomitant]
     Route: 048
     Dates: start: 20090527, end: 20090622
  8. NEUROTROPIN [Concomitant]
     Route: 048
     Dates: start: 20090527, end: 20090622
  9. FERROMIA [Concomitant]
     Route: 048
     Dates: start: 20090527, end: 20090622

REACTIONS (3)
  - GASTRIC ULCER [None]
  - MELAENA [None]
  - PNEUMONIA [None]
